FAERS Safety Report 5694650-2 (Version None)
Quarter: 2008Q2

REPORT INFORMATION
  Report Type: 
  Country: None (occurrence: None)
  Receive Date: 20080404
  Receipt Date: 20080402
  Transmission Date: 20081010
  Serious: Yes (Death, Life-Threatening, Hospitalization, Other)
  Sender: FDA-Public Use
  Company Number: A0717838A

PATIENT
  Age: 53 Year
  Sex: Female

DRUGS (9)
  1. ZIAGEN [Suspect]
     Indication: HIV INFECTION
     Dosage: 600MG PER DAY
     Route: 048
  2. EPIVIR [Suspect]
     Indication: HIV INFECTION
     Dosage: 50MG PER DAY
     Route: 048
  3. REYATAZ [Suspect]
     Indication: HIV INFECTION
     Dosage: 300MG PER DAY
     Route: 048
  4. NORVIR [Suspect]
     Indication: HIV INFECTION
     Dosage: 100MG PER DAY
     Route: 048
  5. COMBIVIR [Suspect]
  6. KALETRA [Suspect]
  7. UNKNOWN [Concomitant]
  8. ROSUVASTATIN [Concomitant]
  9. TRICOR [Concomitant]

REACTIONS (14)
  - BLOOD BILIRUBIN INCREASED [None]
  - BRADYCARDIA [None]
  - CARDIAC ARREST [None]
  - CD4 LYMPHOCYTES DECREASED [None]
  - CEREBROVASCULAR ACCIDENT [None]
  - GENERAL PHYSICAL HEALTH DETERIORATION [None]
  - HEMIPARESIS [None]
  - HEPATIC ENZYME INCREASED [None]
  - HYPOAESTHESIA [None]
  - IDIOPATHIC THROMBOCYTOPENIC PURPURA [None]
  - MENTAL STATUS CHANGES [None]
  - MYOCARDIAL INFARCTION [None]
  - PLATELET COUNT DECREASED [None]
  - RENAL FAILURE ACUTE [None]
